FAERS Safety Report 14404511 (Version 1)
Quarter: 2018Q1

REPORT INFORMATION
  Report Type: Spontaneous
  Country: US (occurrence: US)
  Receive Date: 20180117
  Receipt Date: 20180117
  Transmission Date: 20180509
  Serious: Yes (Other)
  Sender: FDA-Public Use
  Company Number: US-SA-2016SA233064

PATIENT
  Age: 52 Year
  Sex: Female
  Weight: 54.43 kg

DRUGS (7)
  1. PARAPLATIN [Concomitant]
     Active Substance: CARBOPLATIN
     Route: 065
  2. ESTRATEST [Concomitant]
     Active Substance: ESTROGENS, ESTERIFIED\METHYLTESTOSTERONE
     Route: 065
  3. BUTALBITAL AND ACETAMINOPHEN [Concomitant]
     Active Substance: ACETAMINOPHEN\BUTALBITAL
     Route: 065
  4. COMPAZINE [Concomitant]
     Active Substance: PROCHLORPERAZINE MALEATE
     Route: 065
  5. AMBIEN CR [Concomitant]
     Active Substance: ZOLPIDEM TARTRATE
     Route: 065
  6. TAXOTERE [Suspect]
     Active Substance: DOCETAXEL
     Indication: FALLOPIAN TUBE CANCER
     Dosage: FREQUENCY: EVERY 3 WEEKS
     Route: 051
     Dates: start: 20090825, end: 20090825
  7. TAXOTERE [Suspect]
     Active Substance: DOCETAXEL
     Indication: FALLOPIAN TUBE CANCER
     Dosage: FREQUENCY: EVERY 3 WEEKS
     Route: 051
     Dates: start: 20091215, end: 20091215

REACTIONS (6)
  - Emotional distress [Unknown]
  - Discomfort [Unknown]
  - Psychological trauma [Unknown]
  - Anxiety [Unknown]
  - Alopecia [Not Recovered/Not Resolved]
  - Impaired quality of life [Unknown]

NARRATIVE: CASE EVENT DATE: 200909
